FAERS Safety Report 9448153 (Version 1)
Quarter: 2013Q3

REPORT INFORMATION
  Report Type: Spontaneous
  Country: US (occurrence: None)
  Receive Date: 20130806
  Receipt Date: 20130806
  Transmission Date: 20140515
  Serious: Yes (Hospitalization, Other)
  Sender: FDA-Public Use
  Company Number: IN-012511

PATIENT
  Age: 22 Year
  Sex: Female

DRUGS (2)
  1. BRAVELLE [Suspect]
     Indication: IN VITRO FERTILISATION
     Dates: start: 20130722, end: 20130723
  2. MENOPUR [Concomitant]

REACTIONS (2)
  - Dizziness [None]
  - Tachycardia [None]
